FAERS Safety Report 10065815 (Version 1)
Quarter: 2014Q2

REPORT INFORMATION
  Report Type: Spontaneous
  Country: US (occurrence: US)
  Receive Date: 20140408
  Receipt Date: 20140408
  Transmission Date: 20141212
  Serious: Yes (Other)
  Sender: FDA-Public Use
  Company Number: US-ASTELLAS-2014US002372

PATIENT
  Age: 37 Year
  Sex: Female

DRUGS (2)
  1. MYRBETRIQ [Suspect]
     Indication: PRODUCT USED FOR UNKNOWN INDICATION
     Dosage: 50 MG, UNKNOWN/D
     Route: 065
  2. CAMILA [Concomitant]
     Indication: CONTRACEPTION
     Dosage: .35 MG, UNKNOWN/D
     Route: 065

REACTIONS (2)
  - Intentional product misuse [Unknown]
  - Hypertension [Unknown]
